FAERS Safety Report 4894727-5 (Version None)
Quarter: 2006Q1

REPORT INFORMATION
  Report Type: 
  Country: None (occurrence: None)
  Receive Date: 20060127
  Receipt Date: 20060127
  Transmission Date: 20060701
  Serious: Yes (Other)
  Sender: FDA-Public Use
  Company Number: None

PATIENT
  Age: 40 Year
  Sex: Female
  Weight: 81.6475 kg

DRUGS (1)
  1. LARIAM [Suspect]
     Indication: MALARIA PROPHYLAXIS
     Dosage: 1 PILL PER WEEK
     Dates: start: 20030501, end: 20030823

REACTIONS (5)
  - ANXIETY [None]
  - HEART RATE INCREASED [None]
  - HYPERTENSION [None]
  - PARANOIA [None]
  - WEIGHT INCREASED [None]
